FAERS Safety Report 11633801 (Version 2)
Quarter: 2015Q4

REPORT INFORMATION
  Report Type: Spontaneous
  Country: LB (occurrence: LB)
  Receive Date: 20151015
  Receipt Date: 20151021
  Transmission Date: 20160304
  Serious: Yes (Death, Hospitalization, Other)
  Sender: FDA-Public Use
  Company Number: PHHY2015LB124836

PATIENT
  Age: 94 Year
  Sex: Female

DRUGS (5)
  1. ASPIRIN. [Concomitant]
     Active Substance: ASPIRIN
     Indication: PRODUCT USED FOR UNKNOWN INDICATION
     Route: 065
  2. EXFORGE HCT [Suspect]
     Active Substance: AMLODIPINE BESYLATE\HYDROCHLOROTHIAZIDE\VALSARTAN
     Indication: HYPERTENSION
     Dosage: ( 10 MG AMLODIPINE, 160 MG VALS, 25 MG HYDROCHLORTHIAZIDE), 2 DF DAILY
     Route: 048
  3. EXFORGE HCT [Suspect]
     Active Substance: AMLODIPINE BESYLATE\HYDROCHLOROTHIAZIDE\VALSARTAN
     Dosage: UNK (10 MG AMLODIPINE, 160 MG VALS AND 12.5 MG HYDROCHLOROTHIAZIDE)
     Route: 048
  4. ETORICOXIB [Concomitant]
     Active Substance: ETORICOXIB
     Indication: PRODUCT USED FOR UNKNOWN INDICATION
     Route: 065
  5. VITAMIN D [Concomitant]
     Active Substance: CHOLECALCIFEROL
     Indication: PRODUCT USED FOR UNKNOWN INDICATION
     Route: 065

REACTIONS (7)
  - Gastroenteritis [Fatal]
  - Overdose [Not Recovered/Not Resolved]
  - Asthenia [Unknown]
  - Incorrect dose administered [Unknown]
  - Decreased appetite [Unknown]
  - Hypotension [Unknown]
  - Intentional product misuse [Not Recovered/Not Resolved]
